FAERS Safety Report 4328718-X (Version None)
Quarter: 2004Q1

REPORT INFORMATION
  Report Type: 
  Country: None (occurrence: None)
  Receive Date: 20040331
  Receipt Date: 20040317
  Transmission Date: 20041129
  Serious: Yes (Hospitalization)
  Sender: FDA-Public Use
  Company Number: CHNY2004JP00500

PATIENT
  Age: 75 Year
  Sex: Male
  Weight: 45 kg

DRUGS (4)
  1. PURSENNID (NCH) (SENNA GLYCOSIDES (CA SALTS OF PURIFIED SENNA EXTRACT) [Suspect]
     Dosage: 36 MG, ONCE/SINGLE, ORAL
     Route: 048
     Dates: start: 20030413, end: 20030413
  2. MAGCOROL (MAGNESIUM CITRATE) [Suspect]
     Dosage: 250 ML, ONCE/SINGLE, ORAL
     Route: 048
     Dates: start: 20030413, end: 20030413
  3. TELEMINSOFT (BISACODYL) [Suspect]
     Dosage: 2 SUPPO ONCE/SINGLE, RECTAL
     Route: 054
     Dates: start: 20030414, end: 20030414
  4. NIFLEC (SODIUM SULFATE ANYHDROUS) [Suspect]
     Dosage: 2 1, ONCE/SINGLE, ORAL
     Route: 048
     Dates: start: 20030418, end: 20030418

REACTIONS (2)
  - COLITIS ULCERATIVE [None]
  - COLONIC POLYP [None]
